FAERS Safety Report 24463655 (Version 1)
Quarter: 2024Q4

REPORT INFORMATION
  Report Type: Report from Study
  Country: US (occurrence: US)
  Receive Date: 20241018
  Receipt Date: 20241018
  Transmission Date: 20250115
  Serious: No
  Sender: ROCHE
  Company Number: US-ROCHE-3473685

PATIENT
  Age: 43 Year
  Sex: Male
  Weight: 108.41 kg

DRUGS (11)
  1. XOLAIR [Suspect]
     Active Substance: OMALIZUMAB
     Indication: Asthma
     Dosage: PRETREATMENT SERUM IGE LEVEL IS 1053 IU/ML
     Route: 058
  2. XOLAIR [Suspect]
     Active Substance: OMALIZUMAB
     Indication: Asthma
  3. ALBUTEROL [Concomitant]
     Active Substance: ALBUTEROL
     Dosage: TAKE 2 PUFFS BY INHALATION EVERY 6 HOURS
     Route: 055
     Dates: start: 20231005
  4. NORVASC [Concomitant]
     Active Substance: AMLODIPINE BESYLATE
     Route: 048
     Dates: start: 20231011
  5. PEPCID [Concomitant]
     Active Substance: FAMOTIDINE
     Route: 048
     Dates: start: 20160818
  6. PEPCID [Concomitant]
     Active Substance: FAMOTIDINE
     Route: 048
     Dates: start: 20231025
  7. FLUTICASONE [Concomitant]
     Active Substance: FLUTICASONE
     Dosage: TAKE 1 PUFF BY INHALATION DAILY
     Dates: start: 20231206
  8. MOTRIN [Concomitant]
     Active Substance: IBUPROFEN
     Route: 048
  9. SINGULAIR [Concomitant]
     Active Substance: MONTELUKAST SODIUM
     Route: 048
     Dates: start: 20231206
  10. PREDNISONE [Concomitant]
     Active Substance: PREDNISONE
     Route: 048
     Dates: start: 20231025
  11. EFFEXOR XR [Concomitant]
     Active Substance: VENLAFAXINE HYDROCHLORIDE
     Route: 048
     Dates: start: 20221207

REACTIONS (2)
  - Off label use [Unknown]
  - No adverse event [Unknown]
